FAERS Safety Report 22520569 (Version 1)
Quarter: 2023Q2

REPORT INFORMATION
  Report Type: Spontaneous
  Country: GB (occurrence: GB)
  Receive Date: 20230605
  Receipt Date: 20230605
  Transmission Date: 20230721
  Serious: Yes (Disabling, Other)
  Sender: FDA-Public Use
  Company Number: GB-MHRA-MED-202305281652412000-WTHSB

PATIENT
  Age: 43 Year
  Sex: Male
  Weight: 107 kg

DRUGS (1)
  1. AMLODIPINE [Suspect]
     Active Substance: AMLODIPINE BESYLATE
     Indication: Product used for unknown indication
     Dosage: 5 MILLIGRAM, QD (5 MG ONCE A DAY AT NIGHT)
     Route: 065

REACTIONS (3)
  - Benign prostatic hyperplasia [Not Recovered/Not Resolved]
  - Loss of libido [Not Recovered/Not Resolved]
  - Somnolence [Not Recovered/Not Resolved]
